FAERS Safety Report 10273308 (Version 3)
Quarter: 2014Q3

REPORT INFORMATION
  Report Type: Spontaneous
  Country: FR (occurrence: AT)
  Receive Date: 20140702
  Receipt Date: 20140822
  Transmission Date: 20150326
  Serious: Yes (Hospitalization)
  Sender: FDA-Public Use
  Company Number: AT-FRI-1000068644

PATIENT
  Sex: Male

DRUGS (10)
  1. PANTOLOC [Concomitant]
     Active Substance: PANTOPRAZOLE SODIUM
     Dosage: 20 MG
     Dates: start: 20140312
  2. KCI [Concomitant]
     Dates: start: 20140312
  3. DEPENDEX [Concomitant]
     Dosage: 50 MG
     Dates: start: 20140312
  4. ASPIRIN. [Concomitant]
     Active Substance: ASPIRIN
     Dosage: 80 MG
     Dates: start: 20140312
  5. CIPRALEX [Concomitant]
     Active Substance: ESCITALOPRAM OXALATE
     Dosage: 20 MG
     Dates: start: 20140320
  6. MILNACIPRAN [Suspect]
     Active Substance: MILNACIPRAN
     Dosage: 100 MG
     Route: 048
     Dates: start: 20140312, end: 20140315
  7. MILNACIPRAN [Suspect]
     Active Substance: MILNACIPRAN
     Dosage: 50 MG
     Route: 048
     Dates: start: 20140305, end: 20140312
  8. XANOR [Concomitant]
     Active Substance: ALPRAZOLAM
     Dosage: 2 MG
     Dates: start: 20140312
  9. NEUROMULTIVIT [Concomitant]
     Dates: start: 20140312
  10. CIPRALEX [Concomitant]
     Active Substance: ESCITALOPRAM OXALATE
     Dosage: 10 MG
     Dates: start: 20140317, end: 20140319

REACTIONS (1)
  - Micturition disorder [Recovered/Resolved]

NARRATIVE: CASE EVENT DATE: 20140305
